FAERS Safety Report 7801946-4 (Version None)
Quarter: 2011Q4

REPORT INFORMATION
  Report Type: 
  Country: None (occurrence: None)
  Receive Date: 20111007
  Receipt Date: 20111007
  Transmission Date: 20120403
  Serious: Yes (Other)
  Sender: FDA-Public Use
  Company Number: None

PATIENT
  Age: 42 Year
  Sex: Female
  Weight: 79.378 kg

DRUGS (1)
  1. TRANSDERM SCOP [Suspect]
     Indication: MOTION SICKNESS
     Dosage: ONE PATCH
     Route: 062
     Dates: start: 20110927, end: 20111001

REACTIONS (7)
  - DISORIENTATION [None]
  - DISTURBANCE IN ATTENTION [None]
  - DYSURIA [None]
  - NAUSEA [None]
  - MEMORY IMPAIRMENT [None]
  - DIZZINESS [None]
  - FATIGUE [None]
